FAERS Safety Report 4788640-1 (Version None)
Quarter: 2005Q4

REPORT INFORMATION
  Report Type: 
  Country: None (occurrence: None)
  Receive Date: 20051005
  Receipt Date: 20050713
  Transmission Date: 20060501
  Serious: Yes (Death, Hospitalization)
  Sender: FDA-Public Use
  Company Number: GB-GLAXOSMITHKLINE-B0387719A

PATIENT
  Age: 75 Year
  Sex: Male

DRUGS (12)
  1. AVANDAMET [Suspect]
     Indication: DIABETES MELLITUS NON-INSULIN-DEPENDENT
     Dosage: 2TAB PER DAY
     Route: 048
     Dates: start: 20050326
  2. ASPIRIN [Concomitant]
     Dosage: 75MG PER DAY
  3. ATORVASTATIN [Concomitant]
     Dosage: 20MG PER DAY
  4. DIAZEPAM [Concomitant]
     Dosage: 2MG PER DAY
  5. DIHYDROCODEINE [Concomitant]
     Dosage: 30MG FOUR TIMES PER DAY
  6. AMITRIPTYLINE HCL [Concomitant]
     Dosage: 50MG AT NIGHT
  7. FUROSEMIDE [Concomitant]
     Dosage: 40MG TWICE PER DAY
  8. FERROUS SULFATE TAB [Concomitant]
     Dosage: 200MG THREE TIMES PER DAY
  9. FYBOGEL [Concomitant]
  10. PARACETAMOL [Concomitant]
  11. METFORMIN [Concomitant]
     Dosage: 500MG TWICE PER DAY
  12. SENNA [Concomitant]

REACTIONS (31)
  - ABDOMINAL TENDERNESS [None]
  - ABNORMAL CLOTTING FACTOR [None]
  - ARTERIOSCLEROSIS CORONARY ARTERY [None]
  - BILE DUCT OBSTRUCTION [None]
  - BILE DUCT STONE [None]
  - CARDIAC ARREST [None]
  - CHOLECYSTITIS ACUTE [None]
  - CHOLELITHIASIS [None]
  - COLD SWEAT [None]
  - CONFUSIONAL STATE [None]
  - DIABETES MELLITUS [None]
  - DIARRHOEA [None]
  - DIVERTICULUM [None]
  - DYSPNOEA [None]
  - ELECTROMECHANICAL DISSOCIATION [None]
  - FEELING COLD [None]
  - HEPATIC FAILURE [None]
  - HEPATIC NECROSIS [None]
  - HYPERHIDROSIS [None]
  - ISCHAEMIC CARDIOMYOPATHY [None]
  - LIVER FUNCTION TEST ABNORMAL [None]
  - MYOCARDIAL ISCHAEMIA [None]
  - PERIPHERAL VASCULAR DISORDER [None]
  - PERITONITIS [None]
  - PULMONARY OEDEMA [None]
  - PYREXIA [None]
  - RASH ERYTHEMATOUS [None]
  - SEPSIS [None]
  - TACHYCARDIA [None]
  - VOMITING [None]
  - WHEEZING [None]
